FAERS Safety Report 7708801-9 (Version None)
Quarter: 2011Q3

REPORT INFORMATION
  Report Type: 
  Country: None (occurrence: None)
  Receive Date: 20110824
  Receipt Date: 20110824
  Transmission Date: 20111222
  Serious: Yes (Other)
  Sender: FDA-Public Use
  Company Number: None

PATIENT
  Age: 52 Year
  Sex: Female
  Weight: 90.9 kg

DRUGS (2)
  1. CEFTRIAXONE [Suspect]
     Indication: URINARY TRACT INFECTION
     Dosage: 1 GM  Q 24 HOURS INTRAVENOUS 042 (NOT OTHERWISE SPEC)
     Route: 042
  2. GAMMAGARD LIQUID [Suspect]
     Indication: AUTOIMMUNE THROMBOCYTOPENIA
     Dosage: 400 MG/KG Q 24 HOURS INTRAVENOUS 042 (NOT OTHERWISE SPEC)
     Route: 042

REACTIONS (4)
  - MYELODYSPLASTIC SYNDROME [None]
  - HAEMOLYSIS [None]
  - ANTI-PLATELET ANTIBODY POSITIVE [None]
  - COOMBS DIRECT TEST POSITIVE [None]
